FAERS Safety Report 8834732 (Version 1)
Quarter: 2012Q4

REPORT INFORMATION
  Report Type: Spontaneous
  Country: MX (occurrence: None)
  Receive Date: 20121009
  Receipt Date: 20121009
  Transmission Date: 20130627
  Serious: Yes (Other)
  Sender: FDA-Public Use
  Company Number: VAL_00899_2012

PATIENT
  Sex: Female

DRUGS (7)
  1. METOPROLOL TARTRATE [Suspect]
     Indication: PRE-ECLAMPSIA
     Dosage: 100 mg 1x/12 hours oral
     Route: 048
  2. HYDRALAZINE [Suspect]
     Indication: PRE-ECLAMPSIA
     Dosage: 50 mg 1x/6 hours)
  3. LACTATE RINGER [Concomitant]
  4. OMEPRAZOLE [Concomitant]
  5. DEXAMETHASONE [Concomitant]
  6. PHENYTOIN SODIUM [Concomitant]
  7. ANAESTHETIC [Concomitant]

REACTIONS (3)
  - Maternal exposure during pregnancy [None]
  - Renal failure acute [None]
  - Caesarean section [None]
